FAERS Safety Report 23942974 (Version 2)
Quarter: 2024Q2

REPORT INFORMATION
  Report Type: Spontaneous
  Country: JP (occurrence: JP)
  Receive Date: 20240605
  Receipt Date: 20240607
  Transmission Date: 20240716
  Serious: Yes (Hospitalization, Other)
  Sender: FDA-Public Use
  Company Number: JP-TAKEDA-2024TUS055109

PATIENT
  Age: 32 Year
  Sex: Female

DRUGS (9)
  1. FOSRENOL [Suspect]
     Active Substance: LANTHANUM CARBONATE
     Indication: Product used for unknown indication
     Dosage: UNK
     Route: 065
  2. ADALAT CC [Suspect]
     Active Substance: NIFEDIPINE
     Indication: Blood pressure increased
     Dosage: UNK
     Route: 065
  3. ADALAT CC [Suspect]
     Active Substance: NIFEDIPINE
     Indication: Blood pressure decreased
  4. OLMESARTAN [Concomitant]
     Active Substance: OLMESARTAN
     Dosage: UNK
     Route: 065
  5. DOXAZOSIN [Concomitant]
     Active Substance: DOXAZOSIN MESYLATE
     Dosage: UNK
     Route: 065
  6. UNSPECIFIED INGREDIENT [Concomitant]
     Active Substance: UNSPECIFIED INGREDIENT
     Dosage: UNK
     Route: 065
  7. ALDOMET [Concomitant]
     Active Substance: METHYLDOPA
     Indication: Blood pressure decreased
     Dosage: UNK
     Route: 065
  8. POTASSIUM [Concomitant]
     Active Substance: POTASSIUM
     Indication: Blood pressure decreased
     Dosage: UNK
     Route: 065
  9. FOLIC ACID [Concomitant]
     Active Substance: FOLIC ACID
     Indication: Blood pressure decreased
     Dosage: UNK
     Route: 065

REACTIONS (2)
  - Oligohydramnios [Recovering/Resolving]
  - Maternal exposure during pregnancy [Unknown]
